FAERS Safety Report 17614759 (Version 2)
Quarter: 2020Q2

REPORT INFORMATION
  Report Type: Spontaneous
  Country: SK (occurrence: SK)
  Receive Date: 20200402
  Receipt Date: 20200408
  Transmission Date: 20200713
  Serious: Yes (Hospitalization, Other)
  Sender: FDA-Public Use
  Company Number: SK-TEVA-2020-SK-1213776

PATIENT
  Age: 72 Year
  Sex: Female
  Weight: 70 kg

DRUGS (7)
  1. FILGRASTIM [Suspect]
     Active Substance: FILGRASTIM
     Indication: AGRANULOCYTOSIS
     Dosage: DOSE: 40 MU; ADMINISTERED TOTAL 8 DOSES.?ADDITIONAL INFO: THERAPY CONTINUED.
     Route: 058
  2. DIPYRONE [Suspect]
     Active Substance: DIPYRONE
     Indication: ABDOMINAL PAIN
     Dosage: 3 TIMES DAILY, TOTAL DAILY DOSE 7500 MG (INFUSION)
     Route: 065
  3. PITOFENONE [Concomitant]
     Active Substance: PITOFENONE
     Indication: ABDOMINAL PAIN
     Dosage: THREE TIMES DAILY
     Route: 065
  4. METHOTREXATE. [Concomitant]
     Active Substance: METHOTREXATE
     Indication: RHEUMATOID ARTHRITIS
     Route: 065
  5. FENPIVERINE [Concomitant]
     Indication: ABDOMINAL PAIN
     Dosage: THREE TIMES A DAY
     Route: 065
  6. TRIMECAINE [Concomitant]
     Active Substance: TRIMECAINE
     Indication: ABDOMINAL PAIN
     Dosage: THREE TIMES DAILY
     Route: 065
  7. THIETHYLPERAZINE [Concomitant]
     Active Substance: THIETHYLPERAZINE
     Indication: ABDOMINAL PAIN
     Dosage: THREE TIMES DAILY
     Route: 065

REACTIONS (4)
  - Agranulocytosis [Recovering/Resolving]
  - Pancytopenia [Recovering/Resolving]
  - Headache [Unknown]
  - Overdose [Recovering/Resolving]
